FAERS Safety Report 14794136 (Version 1)
Quarter: 2018Q2

REPORT INFORMATION
  Report Type: Spontaneous
  Country: FR (occurrence: FR)
  Receive Date: 20180423
  Receipt Date: 20180423
  Transmission Date: 20180711
  Serious: Yes (Life-Threatening)
  Sender: FDA-Public Use
  Company Number: FR-PFIZER INC-2018162488

PATIENT
  Age: 67 Year
  Sex: Female

DRUGS (3)
  1. ATRACURIUM BESILATE [Suspect]
     Active Substance: ATRACURIUM BESYLATE
     Indication: ANAESTHESIA
     Dosage: 30 MG, UNK
     Route: 042
     Dates: start: 20180307, end: 20180307
  2. REMIFENTANIL [Suspect]
     Active Substance: REMIFENTANIL
     Indication: ANAESTHESIA
     Dosage: UNK
     Route: 042
     Dates: start: 20180307, end: 20180307
  3. AUGMENTIN [Suspect]
     Active Substance: AMOXICILLIN\CLAVULANATE POTASSIUM
     Indication: PROPHYLAXIS
     Dosage: UNK
     Route: 042
     Dates: start: 20180307, end: 20180307

REACTIONS (1)
  - Shock [Recovered/Resolved]

NARRATIVE: CASE EVENT DATE: 20180307
